FAERS Safety Report 4437830-6 (Version None)
Quarter: 2004Q3

REPORT INFORMATION
  Report Type: 
  Country: None (occurrence: None)
  Receive Date: 20040831
  Receipt Date: 20040819
  Transmission Date: 20050211
  Serious: Yes (Hospitalization, Disabling)
  Sender: FDA-Public Use
  Company Number: FR-JNJFOC-20040501489

PATIENT
  Sex: Male

DRUGS (3)
  1. PROPULSID [Suspect]
     Route: 049
     Dates: start: 20021209
  2. PROPULSID [Suspect]
     Route: 049
     Dates: start: 20021209
  3. EUPANTOL [Concomitant]
     Indication: GASTROOESOPHAGEAL REFLUX DISEASE

REACTIONS (1)
  - TONGUE NEOPLASM MALIGNANT STAGE UNSPECIFIED [None]
